FAERS Safety Report 9187220 (Version 1)
Quarter: 2013Q1

REPORT INFORMATION
  Report Type: Spontaneous
  Country: US (occurrence: US)
  Receive Date: 20130322
  Receipt Date: 20130322
  Transmission Date: 20140127
  Serious: Yes (Other)
  Sender: FDA-Public Use
  Company Number: US-TEVA-392915USA

PATIENT
  Sex: Male

DRUGS (1)
  1. TRISENOX [Suspect]
     Indication: ACUTE PROMYELOCYTIC LEUKAEMIA

REACTIONS (1)
  - Neuropathy peripheral [Not Recovered/Not Resolved]
